FAERS Safety Report 6765548-3 (Version None)
Quarter: 2010Q2

REPORT INFORMATION
  Report Type: 
  Country: None (occurrence: None)
  Receive Date: 20100609
  Receipt Date: 20100526
  Transmission Date: 20101027
  Serious: Yes (Hospitalization, Other)
  Sender: FDA-Public Use
  Company Number: 230004M09USA

PATIENT
  Age: 56 Year
  Sex: Female
  Weight: 85 kg

DRUGS (2)
  1. REBIF [Suspect]
     Indication: MULTIPLE SCLEROSIS
     Dosage: 44 MCG, 3 IN 1 WK, SUBCUTANEOUS
     Route: 058
     Dates: start: 20040720, end: 20090101
  2. REBIF [Suspect]
     Indication: MULTIPLE SCLEROSIS
     Dosage: 44 MCG, 3 IN 1 WK, SUBCUTANEOUS
     Route: 058
     Dates: start: 20091001, end: 20100101

REACTIONS (8)
  - ABDOMINAL DISTENSION [None]
  - ASCITES [None]
  - BREAST CANCER IN SITU [None]
  - CONSTIPATION [None]
  - DISCOMFORT [None]
  - EATING DISORDER [None]
  - METASTASES TO CENTRAL NERVOUS SYSTEM [None]
  - OVARIAN CANCER [None]
